FAERS Safety Report 14676782 (Version 2)
Quarter: 2019Q3

REPORT INFORMATION
  Report Type: Spontaneous
  Country: DK (occurrence: DK)
  Receive Date: 20180324
  Receipt Date: 20190924
  Transmission Date: 20191004
  Serious: Yes (Other)
  Sender: FDA-Public Use
  Company Number: DK-ROCHE-2090195

PATIENT
  Sex: Male

DRUGS (6)
  1. FOLINIC ACID [Suspect]
     Active Substance: LEUCOVORIN
     Indication: RECTAL CANCER METASTATIC
     Route: 065
     Dates: start: 2013
  2. AVASTIN [Suspect]
     Active Substance: BEVACIZUMAB
     Indication: RECTAL CANCER METASTATIC
     Route: 065
     Dates: start: 2016
  3. IRINOTECAN [Suspect]
     Active Substance: IRINOTECAN
     Indication: OFF LABEL USE
     Route: 065
     Dates: start: 2013
  4. IRINOTECAN [Suspect]
     Active Substance: IRINOTECAN
     Indication: RECTAL CANCER METASTATIC
     Dosage: NOT REPORTED
     Route: 065
  5. XELODA [Suspect]
     Active Substance: CAPECITABINE
     Indication: RECTAL CANCER METASTATIC
     Route: 065
     Dates: start: 2013
  6. 5-FU [FLUOROURACIL] [Suspect]
     Active Substance: FLUOROURACIL
     Indication: RECTAL CANCER METASTATIC
     Route: 065
     Dates: start: 2013

REACTIONS (9)
  - Muscle rupture [Recovered/Resolved]
  - Alopecia [Recovered/Resolved]
  - Temperature intolerance [Recovered/Resolved]
  - Joint range of motion decreased [Recovered/Resolved]
  - Infusion site extravasation [Unknown]
  - Nausea [Recovered/Resolved]
  - Throat tightness [Recovered/Resolved]
  - Pain [Recovered/Resolved]
  - Product administration error [Unknown]
